FAERS Safety Report 15008503 (Version 1)
Quarter: 2018Q2

REPORT INFORMATION
  Report Type: Spontaneous
  Country: US (occurrence: US)
  Receive Date: 20180521
  Receipt Date: 20180521
  Transmission Date: 20180711
  Serious: Yes (Hospitalization)
  Sender: FDA-Public Use
  Company Number: None

PATIENT
  Age: 67 Year
  Sex: Male
  Weight: 87.54 kg

DRUGS (1)
  1. LITHIUM. [Suspect]
     Active Substance: LITHIUM
     Indication: BIPOLAR I DISORDER
     Dates: start: 20141218, end: 20180219

REACTIONS (6)
  - Toxicity to various agents [None]
  - Haemodialysis [None]
  - Tremor [None]
  - Mental status changes [None]
  - Electrocardiogram QT prolonged [None]
  - Asthenia [None]

NARRATIVE: CASE EVENT DATE: 20180219
